FAERS Safety Report 22634568 (Version 1)
Quarter: 2023Q2

REPORT INFORMATION
  Report Type: Report from Study
  Country: IN (occurrence: IN)
  Receive Date: 20230623
  Receipt Date: 20230623
  Transmission Date: 20230721
  Serious: Yes (Other)
  Sender: FDA-Public Use
  Company Number: IN-002147023-NVSC2023IN141537

PATIENT
  Age: 56 Year
  Sex: Female

DRUGS (1)
  1. RIBOCICLIB [Suspect]
     Active Substance: RIBOCICLIB
     Indication: Breast cancer metastatic
     Dosage: 600 MG, QD
     Route: 065
     Dates: start: 20220615

REACTIONS (9)
  - Dilated cardiomyopathy [Unknown]
  - Multiple sclerosis [Unknown]
  - Hypertension [Unknown]
  - Pain in extremity [Unknown]
  - Bone lesion [Unknown]
  - Pain [Unknown]
  - Blood oestrogen decreased [Unknown]
  - Back pain [Unknown]
  - Cough [Unknown]

NARRATIVE: CASE EVENT DATE: 20220704
